FAERS Safety Report 10093588 (Version 1)
Quarter: 2014Q2

REPORT INFORMATION
  Report Type: Spontaneous
  Country: US (occurrence: US)
  Receive Date: 20140421
  Receipt Date: 20140421
  Transmission Date: 20141212
  Serious: No
  Sender: FDA-Public Use
  Company Number: US-SA-2014SA001987

PATIENT
  Age: 49 Year
  Sex: Female
  Weight: 46.72 kg

DRUGS (3)
  1. ALLEGRA [Suspect]
     Indication: SINUSITIS
     Dosage: STRTED FROM 5 YEARS
     Route: 048
     Dates: end: 20131220
  2. ALLEGRA [Suspect]
     Indication: SINUSITIS
     Dosage: PATIENTRESTARTED THERAPY FROM 22-DEC-2013
     Route: 048
  3. NORVASC [Concomitant]
     Indication: BLOOD PRESSURE
     Route: 065
     Dates: start: 2009

REACTIONS (2)
  - Flatulence [Recovered/Resolved]
  - Dyspepsia [Recovered/Resolved]
